FAERS Safety Report 4719087-1 (Version None)
Quarter: 2005Q3

REPORT INFORMATION
  Report Type: 
  Country: None (occurrence: None)
  Receive Date: 20050719
  Receipt Date: 20050701
  Transmission Date: 20060218
  Serious: No
  Sender: FDA-Public Use
  Company Number: GBS050717785

PATIENT
  Age: 63 Year
  Sex: Male
  Weight: 104 kg

DRUGS (19)
  1. DULOXETINE HYDROCHLORIDE [Suspect]
     Indication: DEPRESSION
     Dosage: 60 MG/1 DAY
     Dates: start: 20050606
  2. FLUARIX (INFLUENZA VIRUS VACCINE POLYVALENT) [Concomitant]
  3. HUMAN MIXTARD 30 GE (INSULIN INJECTION, BIPHASIC) [Concomitant]
  4. ENALAPRIL MALEATE [Concomitant]
  5. DOMPERIDONE [Concomitant]
  6. DILTIAZEM HYDROCHLORIDE [Concomitant]
  7. FRUSEMIDE [Concomitant]
  8. DOXAZOSIN MESYLATE [Concomitant]
  9. OMEPRAZOLE [Concomitant]
  10. AQUEOUS CREAM [Concomitant]
  11. BETAMETHASONE [Concomitant]
  12. CLOPIDOGREL BISULFATE [Concomitant]
  13. PROCYCLIDINE HYDROCHLORIDE 5MG TAB [Concomitant]
  14. ATORVASTATIN CALCIUM [Concomitant]
  15. DIHYDROCODEINE [Concomitant]
  16. CHLORPROMAZINE HCL [Concomitant]
  17. DIAZEPAM [Concomitant]
  18. ISOPROPYL MYRISTATE [Concomitant]
  19. PARAFFIN, LIQUID [Concomitant]

REACTIONS (2)
  - JAUNDICE [None]
  - SKIN EXFOLIATION [None]
